FAERS Safety Report 4688945-9 (Version None)
Quarter: 2005Q2

REPORT INFORMATION
  Report Type: 
  Country: None (occurrence: None)
  Receive Date: 20050613
  Receipt Date: 20050602
  Transmission Date: 20051028
  Serious: Yes (Hospitalization)
  Sender: FDA-Public Use
  Company Number: US-ROCHE-406507

PATIENT
  Age: 46 Year
  Sex: Female

DRUGS (2)
  1. VALIUM [Suspect]
     Indication: DRUG USE FOR UNKNOWN INDICATION
     Route: 065
  2. ELAVIL [Suspect]
     Indication: DRUG USE FOR UNKNOWN INDICATION
     Route: 065

REACTIONS (4)
  - COMA [None]
  - OVERDOSE [None]
  - PNEUMONIA ASPIRATION [None]
  - RESPIRATORY FAILURE [None]
